FAERS Safety Report 7633072-1 (Version None)
Quarter: 2011Q3

REPORT INFORMATION
  Report Type: 
  Country: None (occurrence: None)
  Receive Date: 20110725
  Receipt Date: 20110714
  Transmission Date: 20111222
  Serious: Yes (Other)
  Sender: FDA-Public Use
  Company Number: JP-SANOFI-AVENTIS-2011SA045913

PATIENT
  Age: 34 Year
  Sex: Female

DRUGS (8)
  1. XELODA [Suspect]
     Route: 048
     Dates: start: 20101008, end: 20101224
  2. OXALIPLATIN [Suspect]
     Indication: COLON CANCER METASTATIC
     Route: 041
     Dates: start: 20091201, end: 20100401
  3. OXALIPLATIN [Suspect]
     Route: 041
     Dates: start: 20100701, end: 20101001
  4. LEUCOVORIN CALCIUM [Concomitant]
     Dates: start: 20091201, end: 20101001
  5. AVASTIN [Suspect]
     Route: 041
     Dates: start: 20091201, end: 20100401
  6. OXALIPLATIN [Suspect]
     Route: 041
     Dates: start: 20101008, end: 20101119
  7. AVASTIN [Suspect]
     Route: 041
     Dates: start: 20100701, end: 20101001
  8. FLUOROURACIL [Concomitant]
     Dates: start: 20091201, end: 20101001

REACTIONS (2)
  - AMENORRHOEA [None]
  - NEUTROPHIL COUNT DECREASED [None]
